FAERS Safety Report 6599951-1 (Version None)
Quarter: 2010Q1

REPORT INFORMATION
  Report Type: 
  Country: None (occurrence: None)
  Receive Date: 20100224
  Receipt Date: 20100215
  Transmission Date: 20100710
  Serious: Yes (Other)
  Sender: FDA-Public Use
  Company Number: US-BAXTER-2010BH003178

PATIENT
  Sex: Male
  Weight: 72 kg

DRUGS (4)
  1. HEPARIN SODIUM INJECTION [Suspect]
     Indication: PANCREATIC OPERATION
     Route: 042
     Dates: start: 20080301
  2. MORPHINE [Concomitant]
     Indication: DRUG USE FOR UNKNOWN INDICATION
     Route: 065
  3. MORPHINE [Concomitant]
     Route: 065
  4. TERAZOSIN HCL [Concomitant]
     Indication: DRUG USE FOR UNKNOWN INDICATION
     Route: 065

REACTIONS (1)
  - EYE DISORDER [None]
